FAERS Safety Report 10370195 (Version 1)
Quarter: 2014Q3

REPORT INFORMATION
  Report Type: Report from Study
  Country: US (occurrence: US)
  Receive Date: 20140808
  Receipt Date: 20140808
  Transmission Date: 20150326
  Serious: Yes (Death)
  Sender: FDA-Public Use
  Company Number: PHEH2014US015721

PATIENT
  Sex: Male

DRUGS (1)
  1. GLEEVEC [Suspect]
     Active Substance: IMATINIB MESYLATE
     Dosage: 1 DF,( 100 MG)  TAKE 1 TABLET DAILY FOR 2 WEEKS, THEN INCREASE TO 2 TABLETS DAILY
     Route: 048

REACTIONS (1)
  - Death [Fatal]
